FAERS Safety Report 5057961-X (Version None)
Quarter: 2006Q3

REPORT INFORMATION
  Report Type: 
  Country: None (occurrence: None)
  Receive Date: 20060721
  Receipt Date: 20060419
  Transmission Date: 20061208
  Serious: No
  Sender: FDA-Public Use
  Company Number: US-GLAXOSMITHKLINE-A0602493A

PATIENT
  Age: 68 Year
  Sex: Female

DRUGS (13)
  1. AVANDIA [Suspect]
     Dosage: 8MG PER DAY
     Route: 048
     Dates: start: 20050401
  2. METFORMIN [Concomitant]
  3. ALLEGRA [Concomitant]
  4. FLONASE [Concomitant]
  5. CLONOPIN [Concomitant]
  6. THEOPHYLLINE [Concomitant]
  7. ALBUTEROL SPIROS [Concomitant]
  8. ENAPRIL [Concomitant]
  9. LIPITOR [Concomitant]
  10. QVAR 40 [Concomitant]
  11. SEREVENT [Concomitant]
  12. PAROXETINE HCL [Concomitant]
  13. THYROID TAB [Concomitant]

REACTIONS (2)
  - APPETITE DISORDER [None]
  - BLOOD GLUCOSE FLUCTUATION [None]
